FAERS Safety Report 19222438 (Version 1)
Quarter: 2021Q2

REPORT INFORMATION
  Report Type: Spontaneous
  Country: CN (occurrence: CN)
  Receive Date: 20210506
  Receipt Date: 20210506
  Transmission Date: 20210717
  Serious: Yes (Hospitalization)
  Sender: FDA-Public Use
  Company Number: CN-PFIZER INC-2021460495

PATIENT
  Age: 70 Year
  Sex: Male

DRUGS (9)
  1. TEICOPLANIN [Suspect]
     Active Substance: TEICOPLANIN
     Indication: PNEUMONIA
     Dosage: 400 MG, 1X/DAY
     Route: 041
     Dates: start: 20210318, end: 20210410
  2. FUROSEMIDE. [Concomitant]
     Active Substance: FUROSEMIDE
     Indication: POLYURIA
     Dosage: 20 MG, 2X/DAY
     Route: 048
     Dates: start: 20210329, end: 20210406
  3. BACILLUS LICHENFORMIS [Concomitant]
     Indication: DYSBIOSIS
     Dosage: 0.5 G, 3X/DAY (SUSPENSION)
     Route: 048
     Dates: start: 20210322, end: 20210406
  4. SPIRONOLACTONE. [Concomitant]
     Active Substance: SPIRONOLACTONE
     Indication: POLYURIA
     Dosage: 20 MG, 3X/DAY
     Route: 048
     Dates: start: 20210319, end: 20210323
  5. ACETYLCYSTEINE. [Concomitant]
     Active Substance: ACETYLCYSTEINE
     Indication: PRODUCTIVE COUGH
     Dosage: 0.3 G, 2X/DAY (INHALATION)
     Dates: start: 20210314, end: 20210406
  6. TAMSULOSIN HCL [Concomitant]
     Active Substance: TAMSULOSIN HYDROCHLORIDE
     Indication: MICTURITION DISORDER
     Dosage: 0.2 MG, 1X/DAY
     Route: 048
     Dates: start: 20210314, end: 20210406
  7. AMBROXOL [Concomitant]
     Active Substance: AMBROXOL
     Indication: PRODUCTIVE COUGH
     Dosage: 15 MG, 2X/DAY
     Route: 040
     Dates: start: 20210314, end: 20210406
  8. MEPEM [Suspect]
     Active Substance: MEROPENEM
     Indication: PNEUMONIA
     Dosage: 1 G, 2X/DAY
     Route: 041
     Dates: start: 20210315, end: 20210410
  9. BUDESONIDE. [Concomitant]
     Active Substance: BUDESONIDE
     Indication: PRODUCTIVE COUGH
     Dosage: 1 MG, 2X/DAY (INHALATION)
     Dates: start: 20210314, end: 20210406

REACTIONS (1)
  - Haemorrhage subcutaneous [Recovered/Resolved]

NARRATIVE: CASE EVENT DATE: 20210319
